FAERS Safety Report 23105528 (Version 1)
Quarter: 2023Q4

REPORT INFORMATION
  Report Type: Spontaneous
  Country: US (occurrence: None)
  Receive Date: 20231023
  Receipt Date: 20231023
  Transmission Date: 20240109
  Serious: Yes (Hospitalization)
  Sender: FDA-Public Use
  Company Number: None

PATIENT
  Age: 59 Year
  Sex: Male
  Weight: 86.1 kg

DRUGS (1)
  1. LISINOPRIL [Suspect]
     Active Substance: LISINOPRIL
     Dosage: FREQUENCY : AFTER MEALS;?
     Route: 048
     Dates: start: 20220826, end: 20230210

REACTIONS (4)
  - Dysphagia [None]
  - Odynophagia [None]
  - Pharyngeal swelling [None]
  - Aphasia [None]

NARRATIVE: CASE EVENT DATE: 20230210
